FAERS Safety Report 9163186 (Version 1)
Quarter: 2013Q1

REPORT INFORMATION
  Report Type: Spontaneous
  Country: BR (occurrence: BR)
  Receive Date: 20130314
  Receipt Date: 20130314
  Transmission Date: 20140127
  Serious: Yes (Other)
  Sender: FDA-Public Use
  Company Number: BR-ROCHE-1199931

PATIENT
  Age: 11 Year
  Sex: Male

DRUGS (5)
  1. XOLAIR [Suspect]
     Indication: ASTHMA
     Dosage: 2 AMPOULES
     Route: 058
     Dates: start: 20111221
  2. OMEPRAZOLE [Concomitant]
  3. METICORTEN [Concomitant]
  4. BUDESONIDE [Concomitant]
  5. AEROLIN [Concomitant]
     Route: 065

REACTIONS (7)
  - Cystic fibrosis [Unknown]
  - Malaise [Not Recovered/Not Resolved]
  - Dyspnoea [Not Recovered/Not Resolved]
  - Eye pain [Unknown]
  - Gastrooesophageal reflux disease [Not Recovered/Not Resolved]
  - Rhinitis [Not Recovered/Not Resolved]
  - Cough [Unknown]
